FAERS Safety Report 7901098-6 (Version None)
Quarter: 2011Q4

REPORT INFORMATION
  Report Type: 
  Country: None (occurrence: None)
  Receive Date: 20111108
  Receipt Date: 20111101
  Transmission Date: 20120403
  Serious: Yes (Hospitalization)
  Sender: FDA-Public Use
  Company Number: ES-TEVA-302240ISR

PATIENT
  Age: 23 Year
  Sex: Female
  Weight: 64.85 kg

DRUGS (1)
  1. LEVONORGESTREL [Suspect]
     Indication: POST COITAL CONTRACEPTION
     Route: 048
     Dates: start: 20090807, end: 20090807

REACTIONS (1)
  - CEREBROVASCULAR ACCIDENT [None]
